FAERS Safety Report 12196310 (Version 2)
Quarter: 2016Q2

REPORT INFORMATION
  Report Type: Spontaneous
  Country: US (occurrence: US)
  Receive Date: 20160321
  Receipt Date: 20160505
  Transmission Date: 20160815
  Serious: Yes (Other)
  Sender: FDA-Public Use
  Company Number: US-AMGEN-USASP2016034105

PATIENT
  Age: 53 Year
  Sex: Male

DRUGS (2)
  1. EPOGEN [Suspect]
     Active Substance: ERYTHROPOIETIN
     Dosage: 11000 UNIT, UNK
     Route: 065
     Dates: start: 20160309
  2. EPOGEN [Suspect]
     Active Substance: ERYTHROPOIETIN
     Indication: ANAEMIA
     Dosage: UNK UNK, UNK
     Route: 065
     Dates: start: 20150914

REACTIONS (4)
  - Haemoglobin abnormal [Unknown]
  - Blood iron abnormal [Unknown]
  - Serum ferritin abnormal [Unknown]
  - Dialysis [Unknown]

NARRATIVE: CASE EVENT DATE: 20160215
